FAERS Safety Report 5707868-7 (Version None)
Quarter: 2008Q2

REPORT INFORMATION
  Report Type: 
  Country: None (occurrence: None)
  Receive Date: 20080414
  Receipt Date: 20080402
  Transmission Date: 20081010
  Serious: Yes (Other)
  Sender: FDA-Public Use
  Company Number: 100#08#2008-01814

PATIENT
  Age: 55 Year
  Sex: Female

DRUGS (2)
  1. ATENOLOL [Suspect]
     Indication: DRUG USE FOR UNKNOWN INDICATION
  2. NAPROXEN [Suspect]
     Indication: DRUG USE FOR UNKNOWN INDICATION

REACTIONS (3)
  - CUTANEOUS LUPUS ERYTHEMATOSUS [None]
  - LICHENIFICATION [None]
  - STOMATITIS [None]
